FAERS Safety Report 14602846 (Version 1)
Quarter: 2018Q1

REPORT INFORMATION
  Report Type: Spontaneous
  Country: US (occurrence: US)
  Receive Date: 20180304
  Receipt Date: 20180304
  Transmission Date: 20180509
  Serious: Yes (Hospitalization)
  Sender: FDA-Public Use
  Company Number: None

PATIENT
  Age: 68 Year
  Sex: Male

DRUGS (2)
  1. MELOXICAM. [Suspect]
     Active Substance: MELOXICAM
     Indication: INFLAMMATION
     Route: 048
     Dates: start: 20170126, end: 20171026
  2. MELOXICAM. [Suspect]
     Active Substance: MELOXICAM
     Indication: PAIN
     Route: 048
     Dates: start: 20170126, end: 20171026

REACTIONS (10)
  - Melaena [None]
  - Vomiting [None]
  - Malaise [None]
  - Dizziness [None]
  - Therapy cessation [None]
  - Gastrointestinal ulcer [None]
  - Diarrhoea [None]
  - Anaemia [None]
  - Nausea [None]
  - Gastric haemorrhage [None]

NARRATIVE: CASE EVENT DATE: 20171025
